FAERS Safety Report 5226915-2 (Version None)
Quarter: 2007Q1

REPORT INFORMATION
  Report Type: 
  Country: None (occurrence: None)
  Receive Date: 20070201
  Receipt Date: 20070201
  Transmission Date: 20070707
  Serious: Yes (Other)
  Sender: FDA-Public Use
  Company Number: None

PATIENT
  Age: 74 Year
  Sex: Male

DRUGS (1)
  1. LUMIGAN [Suspect]
     Indication: GLAUCOMA
     Dosage: 1 GT OU QHS
     Dates: start: 20061012, end: 20061030

REACTIONS (1)
  - INTRAOCULAR PRESSURE INCREASED [None]
